FAERS Safety Report 10419713 (Version 1)
Quarter: 2014Q3

REPORT INFORMATION
  Report Type: Report from Study
  Country: CA (occurrence: CA)
  Receive Date: 20140829
  Receipt Date: 20140829
  Transmission Date: 20150326
  Serious: Yes (Other)
  Sender: FDA-Public Use
  Company Number: CA-BRISTOL-MYERS SQUIBB COMPANY-21347745

PATIENT
  Age: 72 Year
  Sex: Male

DRUGS (9)
  1. ORENCIA [Suspect]
     Active Substance: ABATACEPT
     Indication: RHEUMATOID ARTHRITIS
     Route: 042
     Dates: start: 20110602
  2. VITAMIN D [Concomitant]
     Active Substance: CHOLECALCIFEROL
  3. MICARDIS [Concomitant]
     Active Substance: TELMISARTAN
  4. ACETAMINOPHEN. [Concomitant]
     Active Substance: ACETAMINOPHEN
  5. METOPROLOL [Concomitant]
     Active Substance: METOPROLOL
  6. EMTEC-30 [Concomitant]
  7. MOBICOX [Concomitant]
     Active Substance: MELOXICAM
  8. ASAPHEN [Concomitant]
     Active Substance: ASPIRIN
  9. PRAVASTATIN [Concomitant]
     Active Substance: PRAVASTATIN\PRAVASTATIN SODIUM

REACTIONS (2)
  - Cataract [Not Recovered/Not Resolved]
  - Dysphagia [Not Recovered/Not Resolved]

NARRATIVE: CASE EVENT DATE: 20140822
